FAERS Safety Report 16008907 (Version 1)
Quarter: 2019Q1

REPORT INFORMATION
  Report Type: Spontaneous
  Country: GB (occurrence: GB)
  Receive Date: 20190226
  Receipt Date: 20190226
  Transmission Date: 20190418
  Serious: Yes (Disabling, Other)
  Sender: FDA-Public Use
  Company Number: GB-FRESENIUS KABI-FK201901976

PATIENT
  Age: 63 Year
  Sex: Male

DRUGS (2)
  1. GLUCOSE [Concomitant]
     Active Substance: DEXTROSE
     Indication: ATRIAL FIBRILLATION
     Dosage: UNKNOWN
     Route: 065
  2. AMIODARONE HCL (MANUFACTURER UNKNOWN) [Suspect]
     Active Substance: AMIODARONE HYDROCHLORIDE
     Indication: ATRIAL FIBRILLATION
     Dosage: LESS THAN 2 MG/ML
     Route: 042

REACTIONS (5)
  - Product use in unapproved indication [Recovered/Resolved]
  - Myositis [Not Recovered/Not Resolved]
  - Administration site extravasation [Recovered/Resolved]
  - Injection site reaction [Recovered/Resolved]
  - Joint contracture [Not Recovered/Not Resolved]
